FAERS Safety Report 16822740 (Version 2)
Quarter: 2019Q3

REPORT INFORMATION
  Report Type: Spontaneous
  Country: US (occurrence: US)
  Receive Date: 20190918
  Receipt Date: 20190924
  Transmission Date: 20191005
  Serious: No
  Sender: FDA-Public Use
  Company Number: US-ELI_LILLY_AND_COMPANY-US201908007195

PATIENT
  Sex: Female

DRUGS (2)
  1. FORTEO [Suspect]
     Active Substance: TERIPARATIDE
     Indication: BONE LOSS
     Dosage: UNK UNK, UNKNOWN
     Route: 065
     Dates: start: 201908
  2. FORTEO [Suspect]
     Active Substance: TERIPARATIDE
     Dosage: UNK UNK, UNKNOWN
     Route: 065

REACTIONS (10)
  - Irritability [Unknown]
  - Nausea [Not Recovered/Not Resolved]
  - Bone density decreased [Unknown]
  - Jaw fracture [Unknown]
  - Flatulence [Unknown]
  - Muscle spasms [Unknown]
  - Product storage error [Unknown]
  - Off label use [Unknown]
  - Metrorrhagia [Not Recovered/Not Resolved]
  - Arthralgia [Not Recovered/Not Resolved]

NARRATIVE: CASE EVENT DATE: 20190912
